FAERS Safety Report 16760444 (Version 1)
Quarter: 2019Q3

REPORT INFORMATION
  Report Type: Spontaneous
  Country: DK (occurrence: DK)
  Receive Date: 20190830
  Receipt Date: 20190830
  Transmission Date: 20191005
  Serious: Yes (Disabling)
  Sender: FDA-Public Use
  Company Number: PHHY2019DK199279

PATIENT
  Age: 77 Year
  Sex: Male

DRUGS (1)
  1. CORDAN [AMIODARONE HYDROCHLORIDE] [Suspect]
     Active Substance: AMIODARONE HYDROCHLORIDE
     Indication: ATRIAL FIBRILLATION
     Dosage: 100 MG, QD (STYRKE: 100 MG)
     Route: 048
     Dates: start: 201710, end: 20181126

REACTIONS (2)
  - Dyspnoea [Unknown]
  - Interstitial lung disease [Recovering/Resolving]

NARRATIVE: CASE EVENT DATE: 2018
